FAERS Safety Report 17871000 (Version 1)
Quarter: 2020Q2

REPORT INFORMATION
  Report Type: Spontaneous
  Country: US (occurrence: US)
  Receive Date: 20200608
  Receipt Date: 20200608
  Transmission Date: 20200714
  Serious: No
  Sender: FDA-Public Use
  Company Number: None

PATIENT
  Age: 26 Year
  Sex: Male
  Weight: 108 kg

DRUGS (2)
  1. CLONAZEOAM [Concomitant]
  2. DEXTROAMPHET SACCHARAT, AMPHET ASPARTATE, DEXTROAMPHET SULFATE AND AMPHET SULFAT [Suspect]
     Active Substance: AMPHETAMINE ASPARTATE\AMPHETAMINE SULFATE\DEXTROAMPHETAMINE SACCHARATE\DEXTROAMPHETAMINE SULFATE
     Indication: ATTENTION DEFICIT HYPERACTIVITY DISORDER
     Dosage: ?          QUANTITY:120 TABLET(S);?
     Route: 048
     Dates: start: 20180701, end: 20200601

REACTIONS (14)
  - Product substitution issue [None]
  - Diarrhoea [None]
  - Therapeutic response decreased [None]
  - Palpitations [None]
  - Irritability [None]
  - Manufacturing materials issue [None]
  - Disturbance in attention [None]
  - Myalgia [None]
  - Hyperhidrosis [None]
  - Drug ineffective [None]
  - Headache [None]
  - Hypoaesthesia [None]
  - Trismus [None]
  - Dizziness [None]

NARRATIVE: CASE EVENT DATE: 20180804
